FAERS Safety Report 7672620-2 (Version None)
Quarter: 2011Q3

REPORT INFORMATION
  Report Type: 
  Country: None (occurrence: None)
  Receive Date: 20110809
  Receipt Date: 20110727
  Transmission Date: 20111222
  Serious: Yes (Other)
  Sender: FDA-Public Use
  Company Number: US-TYCO HEALTHCARE/MALLINCKRODT-T201101484

PATIENT
  Age: 36 Year
  Sex: Female

DRUGS (1)
  1. SODIUM IODIDE I-131 SOLUTION [Suspect]
     Indication: BASEDOW'S DISEASE

REACTIONS (2)
  - HYPERPARATHYROIDISM [None]
  - PARATHYROID TUMOUR [None]
